FAERS Safety Report 8117323-5 (Version None)
Quarter: 2012Q1

REPORT INFORMATION
  Report Type: 
  Country: None (occurrence: None)
  Receive Date: 20120206
  Receipt Date: 20120131
  Transmission Date: 20120608
  Serious: Yes (Other)
  Sender: FDA-Public Use
  Company Number: GB-B.I. PHARMACEUTICALS,INC./RIDGEFIELD-2012-UK-00102UK

PATIENT
  Age: 56 Year
  Sex: Female

DRUGS (3)
  1. LEVEMIR [Concomitant]
     Dosage: 14 U
     Route: 058
  2. TRAJENTA [Suspect]
     Dosage: 5 MG
     Route: 048
     Dates: start: 20111217, end: 20120106
  3. REPAGLINIDE [Concomitant]
     Dosage: 6 MG
     Route: 048
     Dates: start: 20111217, end: 20120106

REACTIONS (2)
  - OEDEMA PERIPHERAL [None]
  - HYPERGLYCAEMIA [None]
